FAERS Safety Report 10227300 (Version 2)
Quarter: 2014Q3

REPORT INFORMATION
  Report Type: Spontaneous
  Country: US (occurrence: US)
  Receive Date: 20140610
  Receipt Date: 20140827
  Transmission Date: 20150326
  Serious: Yes (Other)
  Sender: FDA-Public Use
  Company Number: US-ELI_LILLY_AND_COMPANY-US201406000444

PATIENT
  Age: 73 Year
  Sex: Female

DRUGS (7)
  1. VITAMIN D [Concomitant]
     Active Substance: CHOLECALCIFEROL
     Indication: PRODUCT USED FOR UNKNOWN INDICATION
     Route: 065
  2. CALCIUM [Concomitant]
     Active Substance: CALCIUM
     Indication: PRODUCT USED FOR UNKNOWN INDICATION
     Route: 065
  3. CELEBREX [Concomitant]
     Active Substance: CELECOXIB
     Indication: PRODUCT USED FOR UNKNOWN INDICATION
     Route: 065
  4. FORTEO [Suspect]
     Active Substance: TERIPARATIDE
     Indication: NECK SURGERY
     Dosage: UNK, QD
     Route: 065
     Dates: start: 201309
  5. FORTEO [Suspect]
     Active Substance: TERIPARATIDE
     Dosage: UNK, QD
     Route: 065
     Dates: end: 20140520
  6. PINDOLOL. [Concomitant]
     Active Substance: PINDOLOL
     Indication: BLOOD PRESSURE
     Dosage: 10 MG, QD
     Route: 065
  7. FLORINEF ACETATE [Concomitant]
     Active Substance: FLUDROCORTISONE ACETATE
     Indication: PRODUCT USED FOR UNKNOWN INDICATION
     Route: 065

REACTIONS (5)
  - Breast cancer [Unknown]
  - Visual acuity reduced [Recovered/Resolved]
  - Off label use [Unknown]
  - Blood calcium decreased [Unknown]
  - Implant site mass [Recovered/Resolved]

NARRATIVE: CASE EVENT DATE: 201405
